FAERS Safety Report 6007986-2 (Version None)
Quarter: 2008Q4

REPORT INFORMATION
  Report Type: 
  Country: None (occurrence: None)
  Receive Date: 20081217
  Receipt Date: 20080624
  Transmission Date: 20090506
  Serious: No
  Sender: FDA-Public Use
  Company Number: US-ASTRAZENECA-2008UW12662

PATIENT
  Age: 67 Year
  Sex: Male
  Weight: 90.7 kg

DRUGS (4)
  1. CRESTOR [Suspect]
     Indication: BLOOD CHOLESTEROL INCREASED
     Route: 048
     Dates: start: 20080619
  2. FISH OIL [Concomitant]
  3. ASPIRIN [Concomitant]
     Route: 048
  4. STRANGE MEDICINE FOR EYES [Concomitant]

REACTIONS (3)
  - EPISTAXIS [None]
  - FATIGUE [None]
  - HYPERHIDROSIS [None]
